FAERS Safety Report 12956369 (Version 1)
Quarter: 2016Q4

REPORT INFORMATION
  Report Type: Spontaneous
  Country: CA (occurrence: CA)
  Receive Date: 20161118
  Receipt Date: 20161118
  Transmission Date: 20170207
  Serious: Yes (Hospitalization, Other)
  Sender: FDA-Public Use
  Company Number: CA-BAYER-2016-218933

PATIENT
  Age: 48 Year
  Sex: Female

DRUGS (1)
  1. MIRENA [Suspect]
     Active Substance: LEVONORGESTREL
     Dosage: UNK
     Dates: start: 201409

REACTIONS (10)
  - Paraesthesia [None]
  - Raynaud^s phenomenon [None]
  - Spinal disorder [None]
  - Agitation [None]
  - Spinal decompression [None]
  - Angiopathy [None]
  - Pulse abnormal [None]
  - Impaired healing [None]
  - Feeling hot [None]
  - Peripheral coldness [None]

NARRATIVE: CASE EVENT DATE: 201505
